FAERS Safety Report 7296548-5 (Version None)
Quarter: 2011Q1

REPORT INFORMATION
  Report Type: 
  Country: None (occurrence: None)
  Receive Date: 20110216
  Receipt Date: 20110204
  Transmission Date: 20110831
  Serious: Yes (Other)
  Sender: FDA-Public Use
  Company Number: PHHY2011SI09336

PATIENT
  Age: 79 Year
  Sex: Male

DRUGS (5)
  1. ALISKIREN [Suspect]
     Indication: HYPERTENSION
     Dosage: 150 MG, UNK
     Dates: start: 20100407
  2. DIUVER [Concomitant]
     Dosage: 10 MG, UNK
     Dates: start: 20060101
  3. APROVEL [Concomitant]
     Dosage: 300 MG, UNK
     Dates: start: 20070101
  4. CONCOR [Concomitant]
     Dosage: 2.5 MG, UNK
  5. LACIPIL [Concomitant]
     Dosage: 4 MG, UNK
     Dates: start: 20080101

REACTIONS (1)
  - BLOOD GLUCOSE INCREASED [None]
